FAERS Safety Report 18855643 (Version 2)
Quarter: 2021Q1

REPORT INFORMATION
  Report Type: Report from Study
  Country: JP (occurrence: JP)
  Receive Date: 20210205
  Receipt Date: 20210219
  Transmission Date: 20210420
  Serious: Yes (Hospitalization)
  Sender: FDA-Public Use
  Company Number: JP-BRISTOL-MYERS SQUIBB COMPANY-BMS-2021-006300

PATIENT
  Age: 83 Year
  Sex: Male
  Weight: 83.2 kg

DRUGS (30)
  1. EVIPROSTAT [Concomitant]
     Active Substance: CHIMAPHILA UMBELLATA\MANGANESE CHLORIDE\POPULUS TREMULOIDES\SODIUM TAUROCHOLATE
     Indication: BENIGN PROSTATIC HYPERPLASIA
     Dosage: UNK, Q8H
     Route: 048
  2. NIVOLUMAB [Suspect]
     Active Substance: NIVOLUMAB
     Indication: SQUAMOUS CELL CARCINOMA OF SKIN
     Dosage: 480 MILLIGRAM
     Route: 041
     Dates: start: 20200708
  3. LOXONIN [Concomitant]
     Active Substance: LOXOPROFEN SODIUM
     Indication: LUMBAR SPINAL STENOSIS
  4. OPALMON [Concomitant]
     Active Substance: LIMAPROST
     Indication: INTERMITTENT CLAUDICATION
     Dosage: 5 MICROGRAM, Q8H
     Route: 048
     Dates: start: 20210118
  5. VALSARTAN. [Concomitant]
     Active Substance: VALSARTAN
     Indication: HYPERTENSION
     Dosage: 80 MILLIGRAM, QD
     Route: 048
     Dates: start: 20210118
  6. LOXONIN [Concomitant]
     Active Substance: LOXOPROFEN SODIUM
     Indication: OSTEOARTHRITIS
     Dosage: 100 MG, PRN
     Route: 062
  7. LOXOPROFEN NA [Concomitant]
     Active Substance: LOXOPROFEN SODIUM
     Indication: OSTEOARTHRITIS
     Dosage: UNK, PRN
     Route: 062
     Dates: start: 20210118
  8. LOXOPROFEN NA [Concomitant]
     Active Substance: LOXOPROFEN SODIUM
     Indication: LUMBAR SPINAL STENOSIS
  9. TAKECAB [Concomitant]
     Active Substance: VONOPRAZAN FUMARATE
     Indication: GASTROOESOPHAGEAL REFLUX DISEASE
     Dosage: 20 MILLIGRAM, QD
     Route: 048
     Dates: start: 20210118
  10. SUNRYTHM [Concomitant]
     Active Substance: PILSICAINIDE HYDROCHLORIDE
     Indication: VENTRICULAR EXTRASYSTOLES
  11. HACHIMIJIOGAN [Concomitant]
     Active Substance: HERBALS
     Indication: BENIGN PROSTATIC HYPERPLASIA
     Dosage: UNK, PRN
     Route: 048
  12. BEOVA [Concomitant]
     Indication: BENIGN PROSTATIC HYPERPLASIA
     Dosage: 50 MILLIGRAM, QD
     Route: 048
  13. MYTEAR [Concomitant]
     Indication: ASTHENOPIA
     Dosage: ADEQUATE DOSE AS NEEDED
     Route: 047
  14. CEROCRAL [Concomitant]
     Active Substance: IFENPRODIL
     Indication: DIZZINESS
     Dosage: 20 MILLIGRAM, Q8H
     Route: 048
  15. FUROSEMIDE. [Concomitant]
     Active Substance: FUROSEMIDE
     Indication: OEDEMA PERIPHERAL
     Dosage: 40 MG, PRN
     Route: 048
  16. FUROSEMIDE. [Concomitant]
     Active Substance: FUROSEMIDE
     Dosage: 20 MG, PRN
     Route: 048
  17. GENTAMICIN SULFATE. [Concomitant]
     Active Substance: GENTAMICIN SULFATE
     Indication: LIMB INJURY
     Dosage: UNK, PRN
     Route: 061
     Dates: start: 20210118
  18. KARY UNI [Concomitant]
     Active Substance: PIRENOXINE
     Indication: CATARACT
     Dosage: ADEQUATE DOSE AS NEEDED
     Route: 047
  19. NORVASC [Concomitant]
     Active Substance: AMLODIPINE BESYLATE
     Indication: HYPERTENSION
     Dosage: 2.5 MILLIGRAM, QD
     Route: 048
  20. TAKEPRON [Concomitant]
     Active Substance: LANSOPRAZOLE
     Indication: GASTROOESOPHAGEAL REFLUX DISEASE
     Dosage: 15 MILLIGRAM, QD
     Route: 048
  21. IFENPRODIL TARTRATE [Concomitant]
     Active Substance: IFENPRODIL TARTRATE
     Indication: DIZZINESS
     Dosage: 20 MILLIGRAM, Q8H
     Route: 048
     Dates: start: 20210118
  22. AMLODIPINE [Concomitant]
     Active Substance: AMLODIPINE BESYLATE
     Indication: HYPERTENSION
     Dosage: 3.75 MILLIGRAM
     Route: 048
     Dates: start: 20210118
  23. SUNRYTHM [Concomitant]
     Active Substance: PILSICAINIDE HYDROCHLORIDE
     Indication: DIZZINESS
     Dosage: 25 MILLIGRAM, Q8H
     Route: 048
  24. GOREISAN [Concomitant]
     Active Substance: HERBALS
     Indication: OEDEMA PERIPHERAL
     Dosage: UNK, PRN
     Route: 048
  25. METHYCOBAL [Concomitant]
     Active Substance: METHYLCOBALAMIN
     Indication: OSTEOARTHRITIS
     Dosage: 500 MICROGRAM, Q8H
     Route: 048
  26. AVOLVE [Concomitant]
     Active Substance: DUTASTERIDE
     Indication: BENIGN PROSTATIC HYPERPLASIA
     Dosage: 0.5 MILLIGRAM, QD
     Route: 048
  27. GENTAMICIN SULFATE. [Concomitant]
     Active Substance: GENTAMICIN SULFATE
     Indication: INFECTION PROPHYLAXIS
  28. AMVALO [Concomitant]
     Active Substance: AMLODIPINE BESYLATE\VALSARTAN
     Indication: HYPERTENSION
     Dosage: UNK, QD
     Route: 048
  29. FLIVAS [Concomitant]
     Active Substance: NAFTOPIDIL
     Indication: BENIGN PROSTATIC HYPERPLASIA
     Dosage: 50 MILLIGRAM, QD
     Route: 048
  30. GOREISAN [ALISMA ORIENTALE TUBER;ATRACTYLODES SPP. RHIZOME;CINNAMOMUM [Concomitant]
     Indication: OEDEMA PERIPHERAL
     Dosage: 2.5 GRAM, Q8H
     Route: 048
     Dates: start: 20210118

REACTIONS (2)
  - Subcutaneous abscess [Not Recovered/Not Resolved]
  - Lymphadenitis [Not Recovered/Not Resolved]

NARRATIVE: CASE EVENT DATE: 20210108
